FAERS Safety Report 5981049-4 (Version None)
Quarter: 2008Q4

REPORT INFORMATION
  Report Type: 
  Country: None (occurrence: None)
  Receive Date: 20081205
  Receipt Date: 20081020
  Transmission Date: 20090506
  Serious: No
  Sender: FDA-Public Use
  Company Number: A0752598A

PATIENT

DRUGS (2)
  1. COMMIT [Suspect]
     Indication: DRUG USE FOR UNKNOWN INDICATION
  2. BIRTH CONTROL PILLS [Concomitant]

REACTIONS (2)
  - OROPHARYNGEAL PAIN [None]
  - PALPITATIONS [None]
